FAERS Safety Report 4891020-1 (Version None)
Quarter: 2006Q1

REPORT INFORMATION
  Report Type: 
  Country: None (occurrence: None)
  Receive Date: 20060124
  Receipt Date: 20060124
  Transmission Date: 20060701
  Serious: Yes (Life-Threatening, Hospitalization)
  Sender: FDA-Public Use
  Company Number: None

PATIENT
  Age: 58 Year
  Sex: Female
  Weight: 103.4201 kg

DRUGS (1)
  1. RYTHMOL [Suspect]
     Indication: ATRIAL FIBRILLATION
     Dosage: RYTHMOL 300MG PO BID PO
     Route: 048
     Dates: start: 20041009, end: 20041125

REACTIONS (5)
  - HEPATITIS [None]
  - LETHARGY [None]
  - MUSCULOSKELETAL CHEST PAIN [None]
  - PYREXIA [None]
  - TENDERNESS [None]
